FAERS Safety Report 7352114-4 (Version None)
Quarter: 2011Q1

REPORT INFORMATION
  Report Type: 
  Country: None (occurrence: None)
  Receive Date: 20110315
  Receipt Date: 20110307
  Transmission Date: 20110831
  Serious: Yes (Other)
  Sender: FDA-Public Use
  Company Number: US-ELI_LILLY_AND_COMPANY-US201102005659

PATIENT
  Sex: Female
  Weight: 100.23 kg

DRUGS (7)
  1. SYNTHROID [Concomitant]
     Indication: HYPOTHYROIDISM
     Dosage: 150 UG, UNK
     Dates: start: 20010101
  2. SPIRONOLACTONE [Concomitant]
     Indication: HYPERTENSION
     Dosage: 50 MG, UNK
     Route: 048
     Dates: start: 20090501
  3. BYETTA [Suspect]
     Indication: TYPE 2 DIABETES MELLITUS
     Dosage: 5 UG, 2/D
     Route: 058
     Dates: start: 20090530, end: 20091101
  4. GLUCOPHAGE [Concomitant]
     Dosage: 1000 MG, EACH EVENING
     Route: 048
  5. BYETTA [Suspect]
     Dosage: 5 UG, 2/D
     Route: 058
     Dates: start: 20110201, end: 20110218
  6. MAXALT-MLT [Concomitant]
     Indication: MIGRAINE
     Dosage: 10 MG, AS NEEDED
     Dates: start: 20090801
  7. PROTONIX [Concomitant]
     Indication: PRODUCT USED FOR UNKNOWN INDICATION
     Dosage: 40 MG, UNK

REACTIONS (13)
  - WEIGHT DECREASED [None]
  - PRURITUS [None]
  - IMMEDIATE POST-INJECTION REACTION [None]
  - HEADACHE [None]
  - DEPRESSED LEVEL OF CONSCIOUSNESS [None]
  - INJECTION SITE ERYTHEMA [None]
  - URTICARIA [None]
  - HEAD INJURY [None]
  - RASH MACULAR [None]
  - DYSPNOEA [None]
  - INJECTION SITE IRRITATION [None]
  - NON-CARDIAC CHEST PAIN [None]
  - WEIGHT INCREASED [None]
